FAERS Safety Report 17745395 (Version 2)
Quarter: 2020Q2

REPORT INFORMATION
  Report Type: Report from Study
  Country: RU (occurrence: RU)
  Receive Date: 20200505
  Receipt Date: 20200514
  Transmission Date: 20200714
  Serious: Yes (Other)
  Sender: FDA-Public Use
  Company Number: RU-AMGEN-RUSNI2020047205

PATIENT
  Age: 67 Year
  Sex: Female
  Weight: 68 kg

DRUGS (14)
  1. HEPTOR [Concomitant]
     Dosage: 400 MILLIGRAM
     Route: 048
     Dates: start: 201911
  2. PHOSPHOGLIV [GLYCYRRHIZIC ACID] [Concomitant]
     Dosage: 2 UNK
     Route: 048
     Dates: start: 201911
  3. DEXAMETHASONE. [Concomitant]
     Active Substance: DEXAMETHASONE
     Dosage: 8 MILLIGRAM
     Route: 042
     Dates: start: 20191211, end: 20200221
  4. ONDANSETRON [Concomitant]
     Active Substance: ONDANSETRON
     Dosage: 16 MILLIGRAM
     Route: 042
     Dates: start: 20191211, end: 20200221
  5. OXALIPLATIN. [Concomitant]
     Active Substance: OXALIPLATIN
     Indication: COLORECTAL CANCER METASTATIC
     Dosage: UNK
     Dates: start: 20191225
  6. LEUCOVORIN [FOLINIC ACID] [Concomitant]
     Active Substance: LEUCOVORIN
     Indication: COLORECTAL CANCER METASTATIC
     Dosage: UNK
     Dates: start: 20191225
  7. OMEZ [OMEPRAZOLE] [Concomitant]
     Active Substance: OMEPRAZOLE
     Dosage: 20 MILLIGRAM
     Route: 048
     Dates: start: 20191224, end: 20200128
  8. ENOXAPARIN [Concomitant]
     Active Substance: ENOXAPARIN
     Dosage: 0.4-0.5 UNK
     Route: 058
     Dates: start: 20191211, end: 20200128
  9. VITAMIN C [Concomitant]
     Active Substance: ASCORBIC ACID
     Dosage: 4-6 UNK
     Route: 042
     Dates: start: 20191211, end: 20200112
  10. ASPARCAM [ASPARTIC ACID;MAGNESIUM ASPARTATE] [Concomitant]
     Dosage: 1 UNK
     Route: 048
     Dates: start: 20200109, end: 20200128
  11. SODIUM CHLORIDE. [Concomitant]
     Active Substance: SODIUM CHLORIDE
     Dosage: 500 UNK
     Route: 042
     Dates: start: 20191225, end: 20191227
  12. POTASSIUM CHLORIDE. [Concomitant]
     Active Substance: POTASSIUM CHLORIDE
     Dosage: 20 UNK
     Route: 042
     Dates: start: 20191211, end: 20200127
  13. FLUOROURACIL. [Concomitant]
     Active Substance: FLUOROURACIL
     Indication: COLORECTAL CANCER METASTATIC
     Dosage: UNK
     Dates: start: 20191225
  14. PANITUMUMAB [Suspect]
     Active Substance: PANITUMUMAB
     Indication: COLORECTAL CANCER METASTATIC
     Dosage: 408 MILLIGRAM
     Route: 042
     Dates: start: 20191108

REACTIONS (3)
  - Hydrothorax [Recovered/Resolved]
  - Pericardial effusion [Recovered/Resolved]
  - Ascites [Recovered/Resolved]

NARRATIVE: CASE EVENT DATE: 20200113
